FAERS Safety Report 4712609-6 (Version None)
Quarter: 2005Q3

REPORT INFORMATION
  Report Type: 
  Country: None (occurrence: None)
  Receive Date: 20050712
  Receipt Date: 20050622
  Transmission Date: 20060218
  Serious: Yes (Hospitalization)
  Sender: FDA-Public Use
  Company Number: BE-MERCK-0506BEL00060

PATIENT
  Age: 75 Year
  Sex: Female
  Weight: 76 kg

DRUGS (6)
  1. ZOCOR [Suspect]
     Indication: HYPERCHOLESTEROLAEMIA
     Route: 048
     Dates: start: 20030101
  2. AMLODIPINE BESYLATE [Concomitant]
     Route: 048
     Dates: start: 19950101
  3. ZOLPIDEM TARTRATE [Concomitant]
     Route: 048
     Dates: start: 20030101
  4. ASPIRIN [Concomitant]
     Route: 048
     Dates: start: 20000101
  5. MOXONIDINE [Concomitant]
     Route: 048
     Dates: start: 20020101
  6. INSULIN [Concomitant]
     Route: 058
     Dates: start: 19900101

REACTIONS (1)
  - CEREBROVASCULAR ACCIDENT [None]
